FAERS Safety Report 14347149 (Version 1)
Quarter: 2018Q1

REPORT INFORMATION
  Report Type: Spontaneous
  Country: US (occurrence: US)
  Receive Date: 20180102
  Receipt Date: 20180102
  Transmission Date: 20180509
  Serious: No
  Sender: FDA-Public Use
  Company Number: None

PATIENT
  Age: 9 Month
  Sex: Male

DRUGS (1)
  1. CEFDINIR. [Suspect]
     Active Substance: CEFDINIR
     Indication: OTITIS MEDIA
     Route: 048
     Dates: start: 20171228, end: 20171231

REACTIONS (1)
  - Rash [None]

NARRATIVE: CASE EVENT DATE: 20180101
